FAERS Safety Report 4614203-4 (Version None)
Quarter: 2005Q1

REPORT INFORMATION
  Report Type: 
  Country: None (occurrence: None)
  Receive Date: 20050316
  Receipt Date: 20050308
  Transmission Date: 20050727
  Serious: No
  Sender: FDA-Public Use
  Company Number: 2005GB00477

PATIENT
  Age: 87 Year
  Sex: Male
  Weight: 67 kg

DRUGS (10)
  1. CRESTOR [Suspect]
     Indication: HYPERLIPIDAEMIA
     Dosage: 10 MG PO
     Route: 048
     Dates: start: 20050207, end: 20050210
  2. CRESTOR [Suspect]
     Indication: MYOCARDIAL ISCHAEMIA
     Dosage: 10 MG PO
     Route: 048
     Dates: start: 20050207, end: 20050210
  3. BECLOMETHASONE DIPROPIONATE [Concomitant]
  4. CO-AMILOFRUSE [Concomitant]
  5. DIHYDROCODEINE [Concomitant]
  6. DILTIAZEM [Concomitant]
  7. MODISAL [Concomitant]
  8. NITROLINGUAL [Concomitant]
  9. NU-SEALS ASPIRIN [Concomitant]
  10. ALBUTEROL [Concomitant]

REACTIONS (2)
  - CONFUSIONAL STATE [None]
  - HALLUCINATION, VISUAL [None]
